FAERS Safety Report 9261943 (Version 1)
Quarter: 2013Q2

REPORT INFORMATION
  Report Type: Spontaneous
  Country: US (occurrence: US)
  Receive Date: 20130429
  Receipt Date: 20130429
  Transmission Date: 20140414
  Serious: Yes (Congenital Anomaly)
  Sender: FDA-Public Use
  Company Number: US-FRI-1000044723

PATIENT
  Age: 0 Day
  Sex: Male

DRUGS (1)
  1. LEXAPRO [Suspect]
     Route: 064
     Dates: end: 20040812

REACTIONS (9)
  - Craniosynostosis [Unknown]
  - Schizophrenia [Unknown]
  - Autism spectrum disorder [Unknown]
  - Headache [Unknown]
  - Nausea [Unknown]
  - Expressive language disorder [Unknown]
  - Anxiety [Unknown]
  - Depression [Unknown]
  - Attention deficit/hyperactivity disorder [Unknown]
